FAERS Safety Report 5347439-8 (Version None)
Quarter: 2007Q2

REPORT INFORMATION
  Report Type: 
  Country: None (occurrence: None)
  Receive Date: 20070604
  Receipt Date: 20070604
  Transmission Date: 20071010
  Serious: Yes (Other)
  Sender: FDA-Public Use
  Company Number: None

PATIENT
  Age: 36 Year
  Sex: Female
  Weight: 61.2356 kg

DRUGS (2)
  1. TOPAMAX [Suspect]
     Indication: CONVULSION
     Dosage: 25MG 2X/DAY PO
     Route: 048
     Dates: start: 20060101, end: 20070602
  2. TOPAMAX [Suspect]
     Indication: MIGRAINE
     Dosage: 25MG 2X/DAY PO
     Route: 048
     Dates: start: 20060101, end: 20070602

REACTIONS (2)
  - ALOPECIA [None]
  - HAIR TEXTURE ABNORMAL [None]
